FAERS Safety Report 10370210 (Version 5)
Quarter: 2016Q1

REPORT INFORMATION
  Report Type: Report from Study
  Country: BR (occurrence: BR)
  Receive Date: 20140808
  Receipt Date: 20160328
  Transmission Date: 20160525
  Serious: Yes (Other)
  Sender: FDA-Public Use
  Company Number: PHHY2014BR097007

PATIENT
  Age: 32 Year
  Sex: Female
  Weight: 59 kg

DRUGS (7)
  1. HIDROXIUREA [Concomitant]
     Active Substance: HYDROXYUREA
     Indication: SICKLE CELL ANAEMIA
     Dosage: 5 MG, QD
     Route: 048
  2. NIMESULIDE [Concomitant]
     Active Substance: NIMESULIDE
     Indication: PHARYNGEAL DISORDER
     Dosage: 1 DF, QD
     Route: 065
  3. EXJADE [Suspect]
     Active Substance: DEFERASIROX
     Dosage: 750 MG (15 MG/KG), QD (1 DF OF 500 MG AND 1 OF 250 MG)
     Route: 048
  4. FOLIC ACID. [Concomitant]
     Active Substance: FOLIC ACID
     Indication: SICKLE CELL ANAEMIA
     Dosage: 1 DF, QD
     Route: 048
     Dates: start: 198705
  5. EXJADE [Suspect]
     Active Substance: DEFERASIROX
     Indication: SICKLE CELL ANAEMIA
     Dosage: 1250 MG (20 MG/KG), QD (2 TABLETS OF 500 MG, AND 1 TABLETS OF 250 MG IN THE MORNING)
     Route: 048
  6. EXJADE [Suspect]
     Active Substance: DEFERASIROX
     Dosage: 1250 MG (20 MG/KG), QD
     Route: 048
  7. OMEPRAZOLE. [Concomitant]
     Active Substance: OMEPRAZOLE
     Indication: GASTRIC DISORDER
     Dosage: 1 DF, QD
     Route: 048

REACTIONS (17)
  - Uterine leiomyoma [Unknown]
  - Asthenia [Recovering/Resolving]
  - Abdominal discomfort [Recovering/Resolving]
  - Eating disorder [Recovered/Resolved]
  - Viral infection [Unknown]
  - Nausea [Recovering/Resolving]
  - Serum ferritin decreased [Recovering/Resolving]
  - Weight decreased [Recovered/Resolved]
  - Weight fluctuation [Unknown]
  - Ovarian germ cell teratoma [Recovered/Resolved]
  - Abdominal pain upper [Not Recovered/Not Resolved]
  - Sickle cell anaemia with crisis [Recovered/Resolved]
  - Urinary tract infection [Recovered/Resolved]
  - Influenza [Recovering/Resolving]
  - Headache [Recovering/Resolving]
  - Discomfort [Unknown]
  - Hypophagia [Unknown]

NARRATIVE: CASE EVENT DATE: 201403
